FAERS Safety Report 18383978 (Version 1)
Quarter: 2020Q4

REPORT INFORMATION
  Report Type: Spontaneous
  Country: JP (occurrence: JP)
  Receive Date: 20201015
  Receipt Date: 20201015
  Transmission Date: 20210114
  Serious: Yes (Hospitalization, Other)
  Sender: FDA-Public Use
  Company Number: JP-BRISTOL-MYERS SQUIBB COMPANY-BMS-2020-082803

PATIENT
  Age: 70 Year
  Sex: Female
  Weight: 62 kg

DRUGS (6)
  1. ORENCIA [Suspect]
     Active Substance: ABATACEPT
     Indication: RHEUMATOID ARTHRITIS
     Dosage: UNK
     Route: 065
     Dates: start: 20150928, end: 20170928
  2. METOLATE [Suspect]
     Active Substance: METHOTREXATE
     Dosage: 14 MILLIGRAM, QWK
     Route: 065
     Dates: start: 20151103, end: 20160104
  3. METOLATE [Suspect]
     Active Substance: METHOTREXATE
     Indication: RHEUMATOID ARTHRITIS
     Dosage: 16 MILLIGRAM, QWK
     Route: 065
     Dates: start: 20150507, end: 20151103
  4. METOLATE [Suspect]
     Active Substance: METHOTREXATE
     Dosage: 12 MILLIGRAM, QWK
     Route: 065
     Dates: start: 20160104, end: 20170928
  5. METOLATE [Suspect]
     Active Substance: METHOTREXATE
     Dosage: UNK
  6. CELECOX [Concomitant]
     Active Substance: CELECOXIB
     Indication: PRODUCT USED FOR UNKNOWN INDICATION
     Dosage: UNK
     Route: 065
     Dates: start: 201503

REACTIONS (1)
  - Invasive ductal breast carcinoma [Recovering/Resolving]

NARRATIVE: CASE EVENT DATE: 20170928
